FAERS Safety Report 21553685 (Version 8)
Quarter: 2023Q1

REPORT INFORMATION
  Report Type: Report from Study
  Country: US (occurrence: US)
  Receive Date: 20221104
  Receipt Date: 20230221
  Transmission Date: 20230417
  Serious: No
  Sender: FDA-Public Use
  Company Number: US-002147023-NVSC2022US247153

PATIENT
  Age: 16 Year
  Sex: Male

DRUGS (3)
  1. OMNITROPE [Suspect]
     Active Substance: SOMATROPIN
     Indication: Short stature
     Dosage: 3.5 MG, QD
     Route: 058
     Dates: start: 20221027
  2. OMNITROPE [Suspect]
     Active Substance: SOMATROPIN
     Dosage: 3.5 MG, QD, (10)
     Route: 058
     Dates: start: 20221028
  3. OMNITROPE [Suspect]
     Active Substance: SOMATROPIN
     Dosage: 3.5 MG, QD
     Route: 058
     Dates: start: 20221029

REACTIONS (4)
  - Accidental exposure to product [Unknown]
  - Drug dose omission by device [Unknown]
  - Device leakage [Not Recovered/Not Resolved]
  - Device mechanical issue [Unknown]

NARRATIVE: CASE EVENT DATE: 20221027
